FAERS Safety Report 25064407 (Version 2)
Quarter: 2025Q1

REPORT INFORMATION
  Report Type: Spontaneous
  Country: US (occurrence: US)
  Receive Date: 20250311
  Receipt Date: 20250315
  Transmission Date: 20250408
  Serious: Yes (Hospitalization)
  Sender: ROCHE
  Company Number: US-BoehringerIngelheim-2025-BI-011956

PATIENT
  Age: 64 Year
  Sex: Male

DRUGS (1)
  1. ALTEPLASE [Suspect]
     Active Substance: ALTEPLASE
     Indication: Pulmonary embolism
     Route: 065

REACTIONS (5)
  - Hypoxia [Unknown]
  - Pericardial effusion [Unknown]
  - Cardiac ventricular thrombosis [Unknown]
  - Reperfusion injury [Not Recovered/Not Resolved]
  - Pneumonia [Unknown]
